APPROVED DRUG PRODUCT: PROMETHAZINE HYDROCHLORIDE AND CODEINE PHOSPHATE
Active Ingredient: CODEINE PHOSPHATE; PROMETHAZINE HYDROCHLORIDE
Strength: 10MG/5ML;6.25MG/5ML
Dosage Form/Route: SYRUP;ORAL
Application: A088875 | Product #001 | TE Code: AA
Applicant: PHARMOBEDIENT CONSULTING LLC
Approved: Dec 17, 1984 | RLD: No | RS: No | Type: RX